FAERS Safety Report 8774782 (Version 2)
Quarter: 2012Q4

REPORT INFORMATION
  Report Type: 
  Country: US (occurrence: US)
  Receive Date: 20120910
  Receipt Date: 20121112
  Transmission Date: 20130627
  Serious: No
  Sender: FDA-Public Use
  Company Number: US-PFIZER INC-2012218830

PATIENT
  Age: 78 Year
  Sex: Male

DRUGS (1)
  1. INLYTA [Suspect]
     Indication: CARCINOMA KIDNEY
     Dosage: 15 mg, 1x/day
     Route: 048
     Dates: start: 20120410

REACTIONS (2)
  - Speech disorder [Unknown]
  - Diarrhoea [Unknown]
